FAERS Safety Report 18450383 (Version 1)
Quarter: 2020Q4

REPORT INFORMATION
  Report Type: Spontaneous
  Country: US (occurrence: US)
  Receive Date: 20201031
  Receipt Date: 20201031
  Transmission Date: 20210114
  Serious: Yes (Other)
  Sender: FDA-Public Use
  Company Number: US-PURDUE-USA-2020-0153329

PATIENT
  Age: 61 Year
  Sex: Male

DRUGS (5)
  1. HYDROCODONE BITARTRATE (SIMILAR TO IND 59,175) [Suspect]
     Active Substance: HYDROCODONE BITARTRATE
     Indication: PAIN
     Dosage: 10 MG, Q4H
     Route: 048
     Dates: start: 1990
  2. PERCOCET                           /00446701/ [Suspect]
     Active Substance: ACETAMINOPHEN\OXYCODONE HYDROCHLORIDE\OXYCODONE TEREPHTHALATE
     Indication: PAIN
     Dosage: 10 MG, Q4- 6H
     Route: 048
     Dates: start: 2007
  3. OXYCONTIN [Suspect]
     Active Substance: OXYCODONE HYDROCHLORIDE
     Indication: PAIN
     Dosage: UNKNOWN
     Route: 048
     Dates: start: 1990
  4. FENTANYL. [Suspect]
     Active Substance: FENTANYL
     Indication: PAIN
     Dosage: 12 MCG/HR, Q72H
     Route: 003
     Dates: start: 2007
  5. ROXICODONE [Suspect]
     Active Substance: OXYCODONE HYDROCHLORIDE
     Indication: PAIN
     Dosage: 30 MG, Q6H
     Route: 048
     Dates: start: 2013, end: 2020

REACTIONS (6)
  - Drug dependence [Not Recovered/Not Resolved]
  - Withdrawal syndrome [Not Recovered/Not Resolved]
  - Feeling abnormal [Not Recovered/Not Resolved]
  - Drug detoxification [Not Recovered/Not Resolved]
  - Pain [Not Recovered/Not Resolved]
  - Drug tolerance [Unknown]

NARRATIVE: CASE EVENT DATE: 202002
